FAERS Safety Report 9283373 (Version 1)
Quarter: 2013Q2

REPORT INFORMATION
  Report Type: Spontaneous
  Country: US (occurrence: US)
  Receive Date: 20130510
  Receipt Date: 20130510
  Transmission Date: 20140414
  Serious: No
  Sender: FDA-Public Use
  Company Number: US-GLAXOSMITHKLINE-A1002508A

PATIENT
  Sex: Female

DRUGS (2)
  1. TYKERB [Suspect]
     Indication: MASTECTOMY
     Dosage: 250MG SEE DOSAGE TEXT
     Route: 065
     Dates: start: 20101119
  2. XELODA [Concomitant]

REACTIONS (4)
  - Palmar erythema [Not Recovered/Not Resolved]
  - Liver disorder [Unknown]
  - Abdominal pain [Unknown]
  - Dyspnoea [Unknown]
